FAERS Safety Report 9510355 (Version 2)
Quarter: 2013Q3

REPORT INFORMATION
  Report Type: Spontaneous
  Country: US (occurrence: US)
  Receive Date: 20130909
  Receipt Date: 20130909
  Transmission Date: 20140515
  Serious: No
  Sender: FDA-Public Use
  Company Number: US-BRISTOL-MYERS SQUIBB COMPANY-17438995

PATIENT
  Age: 76 Year
  Sex: Male

DRUGS (3)
  1. ABILIFY [Suspect]
     Indication: DEPRESSION
     Route: 048
     Dates: start: 201211
  2. NICOTINE [Suspect]
     Indication: EX-TOBACCO USER
  3. ZOLOFT [Concomitant]

REACTIONS (2)
  - Abnormal dreams [Recovered/Resolved]
  - Treatment noncompliance [Unknown]
